FAERS Safety Report 22159672 (Version 9)
Quarter: 2024Q4

REPORT INFORMATION
  Report Type: Report from Study
  Country: US (occurrence: US)
  Receive Date: 20230331
  Receipt Date: 20241015
  Transmission Date: 20250115
  Serious: Yes (Hospitalization, Other)
  Sender: NOVARTIS
  Company Number: US-002147023-NVSC2023US068409

PATIENT
  Age: 62 Year
  Sex: Female

DRUGS (9)
  1. KESIMPTA [Suspect]
     Active Substance: OFATUMUMAB
     Indication: Multiple sclerosis
     Dosage: UNK, QMO
     Route: 058
  2. KESIMPTA [Suspect]
     Active Substance: OFATUMUMAB
     Indication: Relapsing multiple sclerosis
     Dosage: 20 MG (INJECT 1 PEN (20MG) SUBCUTANEOUSLY AT WEEK 0, WEEK 1 AND WEEK 2 AS DIRECTED)
     Route: 058
  3. KESIMPTA [Suspect]
     Active Substance: OFATUMUMAB
     Dosage: 20 MG, QMO
     Route: 058
     Dates: start: 20230324
  4. OXYBUTYNIN CHLORIDE [Concomitant]
     Active Substance: OXYBUTYNIN CHLORIDE
     Indication: Product used for unknown indication
     Dosage: UNK (ER)
     Route: 065
  5. BIOTIN [Concomitant]
     Active Substance: BIOTIN
     Indication: Product used for unknown indication
     Dosage: UNK
     Route: 065
  6. VITAMINS [Concomitant]
     Active Substance: VITAMINS
     Indication: Product used for unknown indication
     Dosage: UNK
     Route: 065
  7. ASCORBIC ACID\ZINC SULFATE [Concomitant]
     Active Substance: ASCORBIC ACID\ZINC SULFATE
     Indication: Product used for unknown indication
     Dosage: UNK
     Route: 065
  8. ADVIL [Concomitant]
     Active Substance: IBUPROFEN
     Indication: Product used for unknown indication
     Dosage: UNK
     Route: 065
  9. TYLENOL [Concomitant]
     Active Substance: ACETAMINOPHEN
     Indication: Product used for unknown indication
     Dosage: UNK
     Route: 065

REACTIONS (27)
  - Multiple sclerosis relapse [Recovering/Resolving]
  - Gait inability [Recovering/Resolving]
  - Rhabdomyolysis [Recovering/Resolving]
  - Limb discomfort [Recovering/Resolving]
  - Malaise [Recovering/Resolving]
  - Muscle spasms [Recovering/Resolving]
  - Chest pain [Unknown]
  - Hyperhidrosis [Unknown]
  - Pain in jaw [Unknown]
  - Hyperaesthesia teeth [Unknown]
  - Toothache [Unknown]
  - Pain [Unknown]
  - Mobility decreased [Unknown]
  - Influenza like illness [Recovering/Resolving]
  - Chills [Unknown]
  - Asthenia [Unknown]
  - Pyrexia [Recovering/Resolving]
  - Tremor [Unknown]
  - Fatigue [Unknown]
  - Headache [Unknown]
  - COVID-19 [Unknown]
  - Weight increased [Unknown]
  - Therapeutic response unexpected [Unknown]
  - Dehydration [Unknown]
  - Muscular weakness [Unknown]
  - Insomnia [Unknown]
  - Stress [Unknown]

NARRATIVE: CASE EVENT DATE: 20240525
